FAERS Safety Report 17493171 (Version 1)
Quarter: 2020Q1

REPORT INFORMATION
  Report Type: Spontaneous
  Country: NZ (occurrence: NZ)
  Receive Date: 20200304
  Receipt Date: 20200304
  Transmission Date: 20200409
  Serious: Yes (Hospitalization)
  Sender: FDA-Public Use
  Company Number: NZ-SUN PHARMACEUTICAL INDUSTRIES LTD-2020RR-239201

PATIENT
  Age: 74 Year
  Sex: Male

DRUGS (3)
  1. TICAGRELOR. [Suspect]
     Active Substance: TICAGRELOR
     Indication: ISCHAEMIC STROKE
     Dosage: 90 MILLIGRAM, UNK
     Route: 065
  2. ASPIRIN. [Suspect]
     Active Substance: ASPIRIN
     Indication: ISCHAEMIC STROKE
     Dosage: 100 MILLIGRAM, UNK
     Route: 065
  3. HEPARIN [Suspect]
     Active Substance: HEPARIN SODIUM
     Indication: ISCHAEMIC STROKE
     Dosage: 5000 UNITS, UNK
     Route: 065

REACTIONS (1)
  - Cerebral haemorrhage [Recovered/Resolved]
